FAERS Safety Report 9752527 (Version 1)
Quarter: 2013Q4

REPORT INFORMATION
  Report Type: Report from Study
  Country: JP (occurrence: JP)
  Receive Date: 20131213
  Receipt Date: 20131213
  Transmission Date: 20140711
  Serious: Yes (Death, Life-Threatening, Hospitalization, Other)
  Sender: FDA-Public Use
  Company Number: JP-009507513-1312JPN004490

PATIENT
  Sex: Male

DRUGS (30)
  1. CERCINE [Concomitant]
     Dosage: UNK
     Route: 042
     Dates: start: 20121215, end: 20121216
  2. CERCINE [Concomitant]
     Dosage: UNK
     Route: 042
     Dates: start: 20130101, end: 20130101
  3. HICORT [Concomitant]
     Dosage: UNK
     Route: 042
     Dates: start: 20121216
  4. GLYPOSE [Concomitant]
     Dosage: UNK
     Route: 041
     Dates: start: 20121216, end: 20121220
  5. TAMIFLU [Concomitant]
     Indication: PROPHYLAXIS
     Dosage: UNK
     Route: 048
     Dates: start: 20121225, end: 20130103
  6. BENAMBAX [Concomitant]
     Indication: PROPHYLAXIS
     Dosage: ONE TIME OF DAILY DOSAGE UNKNOWN/MONTH
     Route: 055
     Dates: start: 20120111
  7. FAMOTIDINE [Concomitant]
     Indication: PROPHYLAXIS
     Dosage: UNK
     Route: 042
     Dates: start: 20130105
  8. MEPTIN AIR [Concomitant]
     Indication: PROPHYLAXIS
     Dosage: UNK
     Route: 055
     Dates: start: 20130111
  9. DIAPP [Concomitant]
     Indication: PROPHYLAXIS
     Dosage: UNK
     Route: 054
     Dates: start: 20130111, end: 20130131
  10. HOKUNALIN [Concomitant]
     Indication: PROPHYLAXIS
     Dosage: FORMULATION: TAP
     Route: 061
     Dates: start: 20130204
  11. GRANISETRON [Concomitant]
     Indication: PROPHYLAXIS
     Dosage: FORMULATION: TAP
     Route: 041
     Dates: start: 20121231
  12. SULBACILLIN [Concomitant]
     Dosage: UNK
     Route: 041
     Dates: start: 20130421, end: 20130425
  13. VICCILLIN [Concomitant]
     Dosage: UNK
     Route: 041
     Dates: start: 20130426
  14. PARIET [Concomitant]
     Indication: PROPHYLAXIS
     Dosage: UNK
     Route: 048
     Dates: end: 20121216
  15. THEO-DUR [Concomitant]
     Dosage: UNK
     Route: 048
     Dates: end: 20121216
  16. TEMOZOLOMIDE [Suspect]
     Indication: GLIOBLASTOMA MULTIFORME
     Dosage: 200 MG/M2, QD
     Route: 041
     Dates: start: 20121231, end: 20130101
  17. TEMOZOLOMIDE [Suspect]
     Dosage: 150 MG/M2, QD
     Route: 041
     Dates: start: 20130102, end: 20130104
  18. TEMOZOLOMIDE [Suspect]
     Dosage: 150 MG/M2, QD
     Route: 041
     Dates: start: 20130128, end: 20130201
  19. TEMOZOLOMIDE [Suspect]
     Dosage: 200 MG/M2, QD
     Route: 041
     Dates: start: 20130225, end: 20130301
  20. TEMOZOLOMIDE [Suspect]
     Dosage: 200 MG/M2, QD
     Route: 041
     Dates: start: 20130325, end: 20130329
  21. TEMODAL [Suspect]
     Indication: GLIOBLASTOMA MULTIFORME
     Dosage: UNK
     Route: 048
     Dates: start: 20111209, end: 20121204
  22. PASIL [Suspect]
     Dosage: UNK
     Route: 041
     Dates: start: 20121228, end: 20130101
  23. PASIL [Suspect]
     Dosage: UNK
     Route: 041
     Dates: start: 20130110, end: 20130117
  24. ALEVIATIN [Suspect]
     Dosage: UNK
     Route: 048
     Dates: start: 20121217, end: 20130110
  25. ALEVIATIN [Suspect]
     Dosage: UNK
     Route: 041
     Dates: start: 20121217, end: 20131110
  26. OMEPRAZOLE [Suspect]
     Indication: PROPHYLAXIS
     Dosage: UNK
     Route: 042
     Dates: start: 20121217, end: 20130104
  27. HISHIPHAGEN C [Concomitant]
     Indication: PROPHYLAXIS
     Dosage: UNK
     Route: 042
     Dates: start: 20121225, end: 20130128
  28. RINDERON (BETAMETHASONE) [Concomitant]
     Dosage: UNK
     Route: 048
     Dates: start: 20121216, end: 20121216
  29. KEPPRA [Concomitant]
     Dosage: UNK
     Route: 048
     Dates: end: 20121216
  30. TEGRETOL [Concomitant]
     Dosage: UNK
     Route: 048
     Dates: end: 20121216

REACTIONS (11)
  - Disseminated intravascular coagulation [Not Recovered/Not Resolved]
  - Epilepsy [Recovered/Resolved]
  - Bacteraemia [Recovered/Resolved]
  - Device related infection [Recovered/Resolved]
  - Disease progression [Fatal]
  - Hepatic function abnormal [Recovered/Resolved]
  - Pneumonia aspiration [Recovered/Resolved]
  - Device related infection [Recovered/Resolved]
  - White blood cell count decreased [Recovered/Resolved]
  - Asthma [Recovered/Resolved]
  - Anaemia macrocytic [Not Recovered/Not Resolved]
